FAERS Safety Report 5584988-1 (Version None)
Quarter: 2008Q1

REPORT INFORMATION
  Report Type: 
  Country: None (occurrence: None)
  Receive Date: 20080107
  Receipt Date: 20080107
  Transmission Date: 20080703
  Serious: Yes (Other)
  Sender: FDA-Public Use
  Company Number: None

PATIENT
  Sex: Female

DRUGS (2)
  1. KOGENATE [Suspect]
     Indication: HAEMOPHILIA
     Dosage: 1153 UNITS  DAILY  IV
     Route: 042
     Dates: start: 20070101, end: 20071231
  2. KOGENATE W/BIO SET    1068 UNITS   BAYER [Suspect]
     Indication: HAEMOPHILIA
     Dosage: 1068 UNITS  DAILY  IV
     Route: 042
     Dates: start: 20070101, end: 20071231

REACTIONS (1)
  - PHARMACEUTICAL PRODUCT COMPLAINT [None]
